FAERS Safety Report 19131476 (Version 1)
Quarter: 2021Q2

REPORT INFORMATION
  Report Type: Spontaneous
  Country: FR (occurrence: FR)
  Receive Date: 20210413
  Receipt Date: 20210413
  Transmission Date: 20210717
  Serious: Yes (Life-Threatening, Hospitalization, Other)
  Sender: FDA-Public Use
  Company Number: FR-SA-2021SA000620

PATIENT
  Age: 40 Year
  Sex: Male
  Weight: 76 kg

DRUGS (2)
  1. AUBAGIO [Suspect]
     Active Substance: TERIFLUNOMIDE
     Indication: RELAPSING-REMITTING MULTIPLE SCLEROSIS
     Dosage: 14 MG, QD
     Route: 048
     Dates: start: 201806, end: 20201222
  2. METHYLPREDNISOLONE. [Suspect]
     Active Substance: METHYLPREDNISOLONE
     Indication: ENCEPHALITIS
     Dosage: 80 MG, QD
     Route: 041
     Dates: start: 20201229, end: 20210104

REACTIONS (2)
  - Herpes zoster meningitis [Not Recovered/Not Resolved]
  - Meningoencephalitis herpetic [Recovering/Resolving]

NARRATIVE: CASE EVENT DATE: 20201213
